FAERS Safety Report 5848081-2 (Version None)
Quarter: 2008Q3

REPORT INFORMATION
  Report Type: 
  Country: None (occurrence: None)
  Receive Date: 20080814
  Receipt Date: 20080814
  Transmission Date: 20090109
  Serious: No
  Sender: FDA-Public Use
  Company Number: None

PATIENT
  Sex: Female
  Weight: 63.9572 kg

DRUGS (4)
  1. INVEGA [Suspect]
     Indication: POST-TRAUMATIC STRESS DISORDER
     Dosage: 6 MG QHS ORAL
     Route: 048
     Dates: start: 20080428, end: 20080508
  2. PROZAC [Concomitant]
  3. NEURONTIN [Concomitant]
  4. COMBIVENT [Concomitant]

REACTIONS (3)
  - BREAST DISCHARGE [None]
  - BREAST ENLARGEMENT [None]
  - HYPERPROLACTINAEMIA [None]
